FAERS Safety Report 6172121-7 (Version None)
Quarter: 2009Q2

REPORT INFORMATION
  Report Type: 
  Country: None (occurrence: None)
  Receive Date: 20090428
  Receipt Date: 20090428
  Transmission Date: 20091009
  Serious: Yes (Other)
  Sender: FDA-Public Use
  Company Number: None

PATIENT
  Sex: Female
  Weight: 72.5755 kg

DRUGS (1)
  1. CYMBALTA [Suspect]
     Indication: NEURALGIA
     Dosage: 20 MGS 1 PO
     Route: 048
     Dates: start: 20080908, end: 20090427

REACTIONS (4)
  - DRUG WITHDRAWAL SYNDROME [None]
  - NEUROMA [None]
  - PRURITUS [None]
  - WEIGHT INCREASED [None]
